FAERS Safety Report 6469337-9 (Version None)
Quarter: 2009Q4

REPORT INFORMATION
  Report Type: 
  Country: None (occurrence: None)
  Receive Date: 20091202
  Receipt Date: 20091202
  Transmission Date: 20100525
  Serious: Yes (Other)
  Sender: FDA-Public Use
  Company Number: None

PATIENT
  Sex: Female
  Weight: 68.2 kg

DRUGS (1)
  1. LATISSE [Suspect]
     Dosage: ONCE DAILY ONCE PER DAY
     Dates: start: 20090522, end: 20090704

REACTIONS (5)
  - ABDOMINAL DISCOMFORT [None]
  - DIARRHOEA [None]
  - EYE IRRITATION [None]
  - PERIORBITAL DISORDER [None]
  - SKIN DISCOLOURATION [None]
